FAERS Safety Report 19271983 (Version 1)
Quarter: 2021Q2

REPORT INFORMATION
  Report Type: Spontaneous
  Country: JP (occurrence: JP)
  Receive Date: 20210519
  Receipt Date: 20210519
  Transmission Date: 20210717
  Serious: Yes (Other)
  Sender: FDA-Public Use
  Company Number: JP-JNJFOC-20210523747

PATIENT
  Sex: Male

DRUGS (2)
  1. RISPERDAL [Suspect]
     Active Substance: RISPERIDONE
     Indication: IRRITABILITY
     Dosage: 0.5MG IN THE MORNING,1MG IN THE EVENING
     Route: 048
  2. RISPERDAL [Suspect]
     Active Substance: RISPERIDONE
     Dosage: IN THE EVENING
     Route: 048
     Dates: start: 202104

REACTIONS (5)
  - Product use in unapproved indication [Unknown]
  - Epilepsy [Unknown]
  - Off label use [Unknown]
  - Palpitations [Unknown]
  - Dyskinesia [Unknown]
